FAERS Safety Report 5480881-3 (Version None)
Quarter: 2007Q4

REPORT INFORMATION
  Report Type: 
  Country: None (occurrence: None)
  Receive Date: 20071004
  Receipt Date: 20070920
  Transmission Date: 20080405
  Serious: Yes (Other)
  Sender: FDA-Public Use
  Company Number: L07-NLD-05291-01

PATIENT
  Age: 25 Year
  Sex: Female

DRUGS (7)
  1. CITALOPRAM HYDROBROMIDE [Suspect]
     Indication: DEPRESSIVE SYMPTOM
     Dosage: 40 MG QD
  2. CITALOPRAM HYDROBROMIDE [Suspect]
     Indication: DEPRESSIVE SYMPTOM
     Dosage: 30 MG QD
  3. CLOZAPINE [Suspect]
     Indication: SCHIZOAFFECTIVE DISORDER
     Dosage: 125 MG QD
  4. CLOZAPINE [Suspect]
     Indication: SCHIZOAFFECTIVE DISORDER
     Dosage: 300 MG QD
  5. RISPERIDONE [Concomitant]
  6. VALPROIC ACID [Concomitant]
  7. TEMAZEPAM [Concomitant]

REACTIONS (9)
  - ANTIPSYCHOTIC DRUG LEVEL INCREASED [None]
  - DEPRESSED MOOD [None]
  - DIZZINESS [None]
  - DRUG INTERACTION [None]
  - DYSPNOEA AT REST [None]
  - FATIGUE [None]
  - HALLUCINATION, AUDITORY [None]
  - HALLUCINATION, VISUAL [None]
  - WEIGHT INCREASED [None]
